FAERS Safety Report 8284155 (Version 3)
Quarter: 2012Q4

REPORT INFORMATION
  Report Type: 
  Country: US (occurrence: US)
  Receive Date: 20111212
  Receipt Date: 20120920
  Transmission Date: 20130627
  Serious: Yes (Hospitalization, Disabling, Other)
  Sender: FDA-Public Use
  Company Number: PHEH2011US011004

PATIENT
  Age: 52 Year
  Sex: Female

DRUGS (8)
  1. RECLAST [Suspect]
     Indication: OSTEOPOROSIS
     Dosage: 5 mg, once yearly
     Route: 058
     Dates: start: 20090310
  2. RECLAST [Suspect]
     Dosage: 5 mg, once yearly
     Route: 058
     Dates: start: 20100506
  3. MEDROXYPROGESTERONE [Concomitant]
     Dosage: 1 DF, QD
  4. DIVIGEL [Concomitant]
     Dosage: 1 mg daily
  5. XOLAIR [Concomitant]
     Indication: ASTHMA
     Dosage: 225 mg every 2 weeks
     Route: 058
     Dates: start: 20070831
  6. XOLAIR [Concomitant]
  7. VENTOLIN [Concomitant]
     Indication: ASTHMA
     Dosage: UNK UKN, PRN
  8. CYMBALTA [Concomitant]
     Indication: PAIN
     Dosage: 60 mg, once a day

REACTIONS (3)
  - Femur fracture [Recovered/Resolved with Sequelae]
  - Fall [Unknown]
  - Incorrect route of drug administration [Unknown]
